FAERS Safety Report 5191577-X (Version None)
Quarter: 2006Q4

REPORT INFORMATION
  Report Type: 
  Country: None (occurrence: None)
  Receive Date: 20061220
  Receipt Date: 20061220
  Transmission Date: 20070319
  Serious: No
  Sender: FDA-Public Use
  Company Number: None

PATIENT
  Age: 63 Year
  Sex: Female
  Weight: 70.7611 kg

DRUGS (2)
  1. REZULIN [Suspect]
     Indication: DIABETES MELLITUS NON-INSULIN-DEPENDENT
     Dates: start: 19961101, end: 19980608
  2. INDOCIN [Suspect]
     Indication: GOUT
     Dates: start: 19990807, end: 20040901

REACTIONS (3)
  - GOUT [None]
  - HEPATOCELLULAR DAMAGE [None]
  - RENAL DISORDER [None]
